FAERS Safety Report 5883283-0 (Version None)
Quarter: 2008Q3

REPORT INFORMATION
  Report Type: 
  Country: None (occurrence: None)
  Receive Date: 20080915
  Receipt Date: 20080820
  Transmission Date: 20090109
  Serious: Yes (Congenital Anomaly)
  Sender: FDA-Public Use
  Company Number: GB-JNJFOC-20050906028

PATIENT
  Sex: Male

DRUGS (3)
  1. TOPAMAX [Suspect]
     Indication: DRUG EXPOSURE DURING PREGNANCY
  2. CLOBAZAM [Suspect]
     Indication: DRUG EXPOSURE DURING PREGNANCY
     Dosage: 10MG NOCTE
     Route: 064
  3. TEGRETOL [Suspect]
     Indication: DRUG EXPOSURE DURING PREGNANCY
     Route: 064

REACTIONS (2)
  - HIP DYSPLASIA [None]
  - MATERNAL DRUGS AFFECTING FOETUS [None]
